FAERS Safety Report 23181165 (Version 2)
Quarter: 2023Q4

REPORT INFORMATION
  Report Type: Report from Study
  Country: CZ (occurrence: CZ)
  Receive Date: 20231114
  Receipt Date: 20231129
  Transmission Date: 20240110
  Serious: Yes (Other)
  Sender: FDA-Public Use
  Company Number: CZ-MYLANLABS-2023M1120704

PATIENT
  Age: 49 Year
  Sex: Female

DRUGS (2)
  1. HULIO [Suspect]
     Active Substance: ADALIMUMAB-FKJP
     Indication: Psoriatic arthropathy
     Dosage: 40 MILLIGRAM, BIWEEKLY
     Route: 065
     Dates: start: 20221112
  2. METHOTREXATE [Concomitant]
     Active Substance: METHOTREXATE
     Dosage: 10 MILLIGRAM, QW
     Route: 065
     Dates: start: 20221129

REACTIONS (2)
  - Lyme disease [Recovering/Resolving]
  - Erythema [Recovering/Resolving]

NARRATIVE: CASE EVENT DATE: 20231024
